FAERS Safety Report 9288433 (Version 1)
Quarter: 2013Q2

REPORT INFORMATION
  Report Type: Spontaneous
  Country: US (occurrence: US)
  Receive Date: 20130514
  Receipt Date: 20130514
  Transmission Date: 20140414
  Serious: No
  Sender: FDA-Public Use
  Company Number: US-OPTIMER PHARMACEUTICALS, INC.-20110029

PATIENT
  Sex: 0

DRUGS (15)
  1. DIFICID [Suspect]
     Indication: CLOSTRIDIAL INFECTION
     Dosage: 200 MG, BID
     Route: 048
     Dates: start: 20110824, end: 20110829
  2. ERTAPENEM [Concomitant]
     Dosage: 200 MG, UNK
     Route: 048
     Dates: start: 20110824
  3. DORIPENEM [Concomitant]
     Dosage: UNK
     Dates: start: 201108, end: 201108
  4. DIAZEPAM [Concomitant]
  5. NORTRIPTYLINE [Concomitant]
  6. QUETIAPINE [Concomitant]
  7. DULOXETINE [Concomitant]
  8. FUROSEMIDE [Concomitant]
  9. TRAZODONE [Concomitant]
  10. VALPROIC ACID [Concomitant]
  11. TOPIRAMATE [Concomitant]
  12. RISPERIDONE [Concomitant]
  13. LEVOTHYROXINE [Concomitant]
  14. GABAPENTIN [Concomitant]
  15. BENZTROPINE [Concomitant]

REACTIONS (3)
  - Rash generalised [Recovered/Resolved]
  - Rash erythematous [Recovered/Resolved]
  - Rash papular [Recovered/Resolved]
